FAERS Safety Report 9828056 (Version 1)
Quarter: 2014Q1

REPORT INFORMATION
  Report Type: Spontaneous
  Country: US (occurrence: US)
  Receive Date: 20140117
  Receipt Date: 20140117
  Transmission Date: 20141002
  Serious: No
  Sender: FDA-Public Use
  Company Number: US-GILEAD-2010-0031201

PATIENT
  Age: 53 Year
  Sex: Female

DRUGS (7)
  1. ATRIPLA [Suspect]
     Indication: HIV INFECTION
  2. NIFEDIPINE [Concomitant]
  3. SYNTHROID [Concomitant]
  4. ESOMEPRAZOLE [Concomitant]
  5. PRAVASTATIN [Concomitant]
  6. TRAMADOL [Concomitant]
  7. AMBIEN [Concomitant]

REACTIONS (1)
  - Insomnia [Recovered/Resolved]
